FAERS Safety Report 7039143-5 (Version None)
Quarter: 2010Q4

REPORT INFORMATION
  Report Type: 
  Country: None (occurrence: None)
  Receive Date: 20101007
  Receipt Date: 20101007
  Transmission Date: 20110411
  Serious: Yes (Life-Threatening, Hospitalization, Disabling, Other)
  Sender: FDA-Public Use
  Company Number: None

PATIENT
  Age: 45 Year
  Sex: Female
  Weight: 90.7194 kg

DRUGS (1)
  1. KLONOPIN [Suspect]
     Indication: OBSESSIVE-COMPULSIVE DISORDER
     Dosage: 11 PILLS PER DAY (TAPER UNTIL 09)
     Dates: start: 20050101, end: 20070101

REACTIONS (17)
  - AGORAPHOBIA [None]
  - CHEST DISCOMFORT [None]
  - COUGH [None]
  - DEPRESSION [None]
  - DIZZINESS [None]
  - DRUG WITHDRAWAL SYNDROME [None]
  - DYSKINESIA [None]
  - DYSSTASIA [None]
  - EYE HAEMORRHAGE [None]
  - FEAR OF DEATH [None]
  - FEELING OF DESPAIR [None]
  - HYPERTENSION [None]
  - INFLUENZA [None]
  - MUSCLE SPASMS [None]
  - PALPITATIONS [None]
  - TREMOR [None]
  - VISION BLURRED [None]
